FAERS Safety Report 10150462 (Version 2)
Quarter: 2014Q2

REPORT INFORMATION
  Report Type: Report from Study
  Country: FR (occurrence: FR)
  Receive Date: 20140502
  Receipt Date: 20140502
  Transmission Date: 20141212
  Serious: Yes (Hospitalization)
  Sender: FDA-Public Use
  Company Number: FR-BAYER-2014-049758

PATIENT
  Age: 32 Year
  Sex: Female
  Weight: 84 kg

DRUGS (2)
  1. PLACEBO [Suspect]
     Indication: SARCOMA METASTATIC
     Dosage: 160 MG, QD
     Route: 048
     Dates: start: 20130925, end: 20140116
  2. REGORAFENIB [Suspect]
     Indication: SARCOMA METASTATIC
     Dosage: 160 MG/DAY
     Dates: start: 20140214, end: 20140331

REACTIONS (1)
  - Pulmonary embolism [Recovered/Resolved]
